FAERS Safety Report 6910760-3 (Version None)
Quarter: 2010Q3

REPORT INFORMATION
  Report Type: 
  Country: None (occurrence: None)
  Receive Date: 20100806
  Receipt Date: 20100728
  Transmission Date: 20110219
  Serious: Yes (Other)
  Sender: FDA-Public Use
  Company Number: BR-B.I. PHARMACEUTICALS,INC./RIDGEFIELD-2010-BP-08568BP

PATIENT
  Age: 35 Year
  Sex: Female

DRUGS (21)
  1. VIRAMUNE [Suspect]
     Indication: ANTIVIRAL TREATMENT
     Route: 048
     Dates: start: 20020108
  2. VIRACEPT [Concomitant]
     Indication: ANTIVIRAL TREATMENT
     Route: 048
     Dates: start: 20020108
  3. COMBIVIR [Concomitant]
     Indication: ANTIVIRAL TREATMENT
     Route: 048
     Dates: start: 20020108
  4. NYSTATIN [Concomitant]
  5. POTASSIUM CHLORIDE [Concomitant]
  6. ACYCLOVIR [Concomitant]
  7. AMINOPHYLLINE [Concomitant]
  8. AMOXICILLIN TRIHYDRATE [Concomitant]
  9. BACTRIM [Concomitant]
  10. BENZALKONIUM CHLORIDE [Concomitant]
  11. CEFTRIAXONE SODIUM [Concomitant]
  12. DIGOXIN [Concomitant]
  13. FENOTEROL HYDROBROMIDE [Concomitant]
  14. FOLIC ACID [Concomitant]
  15. FOLINIC ACID [Concomitant]
  16. FUROSEMIDE [Concomitant]
  17. HYDRALAZINE HYDROCHLORIDE [Concomitant]
  18. IPRATROPIUM BROMIDE [Concomitant]
  19. IRON PREPARATIONS [Concomitant]
  20. METHYLPREDNISOLONE [Concomitant]
  21. METRONIDAZOLE [Concomitant]

REACTIONS (1)
  - STILLBIRTH [None]
